FAERS Safety Report 6197730-0 (Version None)
Quarter: 2009Q2

REPORT INFORMATION
  Report Type: 
  Country: None (occurrence: None)
  Receive Date: 20090514
  Receipt Date: 20081027
  Transmission Date: 20091009
  Serious: Yes (Hospitalization)
  Sender: FDA-Public Use
  Company Number: WAES 0811USA00213

PATIENT
  Age: 87 Year
  Sex: Female

DRUGS (2)
  1. HYDRODIURIL [Suspect]
     Dosage: PO
     Route: 048
  2. CELEBREX [Suspect]

REACTIONS (1)
  - RENAL FAILURE ACUTE [None]
